FAERS Safety Report 8126446-6 (Version None)
Quarter: 2012Q1

REPORT INFORMATION
  Report Type: 
  Country: None (occurrence: None)
  Receive Date: 20120209
  Receipt Date: 20120131
  Transmission Date: 20120608
  Serious: Yes (Other)
  Sender: FDA-Public Use
  Company Number: BR-ASTRAZENECA-2012SE06878

PATIENT
  Age: 31 Year
  Sex: Male
  Weight: 95 kg

DRUGS (3)
  1. SYMBICORT [Suspect]
     Dosage: 320/9 MCG DAILY
     Route: 055
     Dates: start: 20120128, end: 20120130
  2. LORATADINE [Concomitant]
     Indication: HYPERSENSITIVITY
     Route: 048
  3. SYMBICORT [Suspect]
     Indication: ASTHMA
     Dosage: 160/4.5 MCG DAILY
     Route: 055
     Dates: start: 20110801

REACTIONS (4)
  - HEADACHE [None]
  - PALPITATIONS [None]
  - MEDICATION ERROR [None]
  - DIZZINESS [None]
